FAERS Safety Report 6633408-4 (Version None)
Quarter: 2010Q1

REPORT INFORMATION
  Report Type: 
  Country: None (occurrence: None)
  Receive Date: 20100312
  Receipt Date: 20100309
  Transmission Date: 20100710
  Serious: Yes (Death)
  Sender: FDA-Public Use
  Company Number: US-GILEAD-2010-0027554

PATIENT
  Sex: Male

DRUGS (11)
  1. LETAIRIS [Suspect]
     Indication: PULMONARY ARTERIAL HYPERTENSION
     Route: 048
     Dates: start: 20090123, end: 20100215
  2. REVATIO [Concomitant]
  3. FUROSEMIDE [Concomitant]
  4. COREG [Concomitant]
  5. ASPIRIN [Concomitant]
  6. PREDNISONE [Concomitant]
  7. NEXIUM [Concomitant]
  8. RESTORIL [Concomitant]
  9. CRESTOR [Concomitant]
  10. FLOMAX [Concomitant]
  11. KLOR-CON [Concomitant]

REACTIONS (1)
  - DEATH [None]
